FAERS Safety Report 9888173 (Version 1)
Quarter: 2014Q1

REPORT INFORMATION
  Report Type: Spontaneous
  Country: FR (occurrence: FR)
  Receive Date: 20140211
  Receipt Date: 20140211
  Transmission Date: 20141002
  Serious: Yes (Other)
  Sender: FDA-Public Use
  Company Number: FR-TEVA-460735ISR

PATIENT
  Sex: Male

DRUGS (4)
  1. PROPRANOLOL [Suspect]
     Indication: MIGRAINE
     Dosage: 320 MILLIGRAM DAILY;
     Route: 048
  2. COUMADINE [Concomitant]
     Indication: COAGULOPATHY
  3. INSULIN [Concomitant]
     Indication: DIABETES MELLITUS
  4. VICTOZA [Concomitant]

REACTIONS (1)
  - International normalised ratio abnormal [Not Recovered/Not Resolved]
